FAERS Safety Report 18089968 (Version 3)
Quarter: 2020Q4

REPORT INFORMATION
  Report Type: Report from Study
  Country: None (occurrence: US)
  Receive Date: 20200730
  Receipt Date: 20201030
  Transmission Date: 20210113
  Serious: Yes (Hospitalization, Other)
  Sender: FDA-Public Use
  Company Number: US-ABBVIE-20K-163-3499236-00

PATIENT
  Age: 75 Year
  Sex: Male
  Weight: 113.5 kg

DRUGS (4)
  1. PREDNISONE. [Concomitant]
     Active Substance: PREDNISONE
     Indication: RHEUMATOID ARTHRITIS
  2. HUMIRA [Suspect]
     Active Substance: ADALIMUMAB
     Indication: UVEITIS
     Dosage: CITRATE FREE
     Route: 058
     Dates: start: 202003
  3. METHOTREXATE. [Concomitant]
     Active Substance: METHOTREXATE
     Indication: RHEUMATOID ARTHRITIS
  4. HUMIRA [Suspect]
     Active Substance: ADALIMUMAB
     Indication: RHEUMATOID ARTHRITIS
     Dosage: CITRATE FREE
     Route: 058
     Dates: start: 2017, end: 2017

REACTIONS (17)
  - Blindness unilateral [Not Recovered/Not Resolved]
  - Wound [Recovered/Resolved]
  - Syncope [Recovering/Resolving]
  - Hypotension [Not Recovered/Not Resolved]
  - Cataract [Recovering/Resolving]
  - Fall [Recovered/Resolved]
  - Inflammation [Not Recovered/Not Resolved]
  - Loss of consciousness [Recovered/Resolved]
  - Face injury [Unknown]
  - Head injury [Recovering/Resolving]
  - Anxiety [Not Recovered/Not Resolved]
  - Weight increased [Not Recovered/Not Resolved]
  - Hypotension [Unknown]
  - Loss of consciousness [Unknown]
  - Hallucination [Recovering/Resolving]
  - Blindness unilateral [Not Recovered/Not Resolved]
  - Pain in extremity [Not Recovered/Not Resolved]

NARRATIVE: CASE EVENT DATE: 2017
